FAERS Safety Report 10009658 (Version 2)
Quarter: 2014Q1

REPORT INFORMATION
  Report Type: Spontaneous
  Country: US (occurrence: US)
  Receive Date: 20140312
  Receipt Date: 20140312
  Transmission Date: 20141002
  Serious: No
  Sender: FDA-Public Use
  Company Number: US-INCYTE CORPORATION-2012IN001570

PATIENT
  Age: 63 Year
  Sex: Female

DRUGS (4)
  1. JAKAFI [Suspect]
     Indication: MYELOFIBROSIS
     Dosage: 20 MG, BID
     Route: 048
  2. JAKAFI [Suspect]
     Dosage: 25 MG, BID
     Route: 048
     Dates: start: 20120815
  3. ALLOPURINOL [Concomitant]
     Dosage: 300 MG, QD
  4. FOLIC ACID [Concomitant]
     Dosage: 15 MG, QD

REACTIONS (1)
  - Back pain [Unknown]
